FAERS Safety Report 21944734 (Version 1)
Quarter: 2023Q1

REPORT INFORMATION
  Report Type: Spontaneous
  Country: US (occurrence: US)
  Receive Date: 20230202
  Receipt Date: 20230202
  Transmission Date: 20230417
  Serious: Yes (Other)
  Sender: FDA-Public Use
  Company Number: US-GLAXOSMITHKLINE-US2023011744

PATIENT

DRUGS (1)
  1. BENLYSTA [Suspect]
     Active Substance: BELIMUMAB
     Indication: Product used for unknown indication
     Dosage: UNK

REACTIONS (7)
  - Sjogren^s syndrome [Unknown]
  - Migraine [Unknown]
  - Raynaud^s phenomenon [Unknown]
  - Orthostatic hypertension [Unknown]
  - Fall [Unknown]
  - Dizziness [Unknown]
  - Blood pressure decreased [Unknown]
